FAERS Safety Report 22004721 (Version 1)
Quarter: 2023Q1

REPORT INFORMATION
  Report Type: Spontaneous
  Country: US (occurrence: None)
  Receive Date: 20230216
  Receipt Date: 20230216
  Transmission Date: 20230418
  Serious: Yes (Life-Threatening)
  Sender: FDA-Public Use
  Company Number: None

PATIENT
  Age: 34 Year
  Sex: Female
  Weight: 70.31 kg

DRUGS (2)
  1. RITALIN [Suspect]
     Active Substance: METHYLPHENIDATE HYDROCHLORIDE
     Indication: Attention deficit hyperactivity disorder
     Dosage: FREQUENCY : DAILY;?
     Route: 048
     Dates: start: 20221210, end: 20221211
  2. KETAMINE [Suspect]
     Active Substance: KETAMINE

REACTIONS (7)
  - Dizziness [None]
  - Headache [None]
  - Lethargy [None]
  - Product physical issue [None]
  - Product dispensing error [None]
  - Intentional product use issue [None]
  - Wrong product administered [None]
